FAERS Safety Report 7669495-4 (Version None)
Quarter: 2011Q3

REPORT INFORMATION
  Report Type: 
  Country: None (occurrence: None)
  Receive Date: 20110808
  Receipt Date: 20110803
  Transmission Date: 20111222
  Serious: Yes (Life-Threatening, Other)
  Sender: FDA-Public Use
  Company Number: US-MERCK-1106USA03751

PATIENT
  Age: 8 Year
  Sex: Male
  Weight: 32 kg

DRUGS (2)
  1. LORTAB [Suspect]
     Route: 048
  2. SINGULAIR [Suspect]
     Indication: ASTHMA
     Route: 048
     Dates: start: 20110413, end: 20110625

REACTIONS (4)
  - HOMICIDAL IDEATION [None]
  - SUICIDAL IDEATION [None]
  - MORBID THOUGHTS [None]
  - ADVERSE EVENT [None]
